FAERS Safety Report 8283171-9 (Version None)
Quarter: 2012Q2

REPORT INFORMATION
  Report Type: 
  Country: None (occurrence: None)
  Receive Date: 20120413
  Receipt Date: 20120403
  Transmission Date: 20120825
  Serious: Yes (Other)
  Sender: FDA-Public Use
  Company Number: CA-JNJFOC-20120401952

PATIENT
  Sex: Female
  Weight: 79 kg

DRUGS (5)
  1. FOLIC ACID [Concomitant]
     Dosage: DISCONTINUED 4 WEEK AGO FROM THE TIME OF THE REPORT
     Route: 065
  2. ALL OTHER THERAPEUTICS [Concomitant]
     Route: 065
  3. METHOTREXATE [Concomitant]
     Dosage: DISCONTINUED 4 WEEK AGO FROM THE TIME OF THE REPORT
     Route: 065
  4. REMICADE [Suspect]
     Indication: RHEUMATOID ARTHRITIS
     Route: 042
     Dates: start: 20060101
  5. OXYCONTIN [Concomitant]
     Route: 048
     Dates: start: 20080201

REACTIONS (2)
  - FOOT FRACTURE [None]
  - LIMB INJURY [None]
